FAERS Safety Report 5261755-X (Version None)
Quarter: 2007Q1

REPORT INFORMATION
  Report Type: 
  Country: None (occurrence: None)
  Receive Date: 20061215
  Receipt Date: 20060804
  Transmission Date: 20070707
  Serious: No
  Sender: FDA-Public Use
  Company Number: 06H-163-0309575-00

PATIENT

DRUGS (1)
  1. MORPHINE SULFATE INJ [Suspect]
     Dosage: 22 HOURS
     Dates: start: 20060802

REACTIONS (3)
  - DEPRESSED LEVEL OF CONSCIOUSNESS [None]
  - MEDICATION ERROR [None]
  - OVERDOSE [None]
